FAERS Safety Report 15121192 (Version 1)
Quarter: 2018Q3

REPORT INFORMATION
  Report Type: Spontaneous
  Country: HR (occurrence: HR)
  Receive Date: 20180709
  Receipt Date: 20180709
  Transmission Date: 20181010
  Serious: Yes (Other)
  Sender: FDA-Public Use
  Company Number: HR-ROCHE-2145529

PATIENT
  Age: 48 Year
  Sex: Female

DRUGS (5)
  1. PACLITAXEL. [Concomitant]
     Active Substance: PACLITAXEL
     Indication: OVARIAN CANCER STAGE III
     Dosage: NO
     Route: 065
  2. LIPOSOMAL DOXORUBICIN [Concomitant]
     Active Substance: DOXORUBICIN HYDROCHLORIDE
     Dosage: NO
     Route: 065
  3. NIRAPARIB [Concomitant]
     Active Substance: NIRAPARIB
     Dosage: YES
     Route: 065
  4. AVASTIN [Suspect]
     Active Substance: BEVACIZUMAB
     Indication: OVARIAN CANCER STAGE III
     Dosage: NO
     Route: 065
  5. GEMCITABINE [Concomitant]
     Active Substance: GEMCITABINE\GEMCITABINE HYDROCHLORIDE
     Dosage: NO
     Route: 065

REACTIONS (5)
  - Malignant ascites [Unknown]
  - Carbohydrate antigen 125 increased [Unknown]
  - Carbohydrate antigen 125 increased [Unknown]
  - Cytoreductive surgery [Unknown]
  - Drug effect decreased [Unknown]

NARRATIVE: CASE EVENT DATE: 2018
